FAERS Safety Report 10042877 (Version 3)
Quarter: 2014Q2

REPORT INFORMATION
  Report Type: Spontaneous
  Country: US (occurrence: US)
  Receive Date: 20140328
  Receipt Date: 20140624
  Transmission Date: 20141212
  Serious: Yes (Other)
  Sender: FDA-Public Use
  Company Number: US-AMGEN-USASP2014021270

PATIENT
  Age: 67 Year
  Sex: Female
  Weight: 97.51 kg

DRUGS (1)
  1. PROCRIT [Suspect]
     Indication: LUNG NEOPLASM MALIGNANT
     Dosage: 20000 UNIT, 2 TIMES/WK DEPENDING ON BLOOD LEVEL
     Route: 058
     Dates: start: 201402

REACTIONS (2)
  - Blood count abnormal [Recovered/Resolved]
  - Wrong technique in drug usage process [Not Recovered/Not Resolved]
